FAERS Safety Report 14151126 (Version 1)
Quarter: 2017Q4

REPORT INFORMATION
  Report Type: Spontaneous
  Country: US (occurrence: US)
  Receive Date: 20171102
  Receipt Date: 20171102
  Transmission Date: 20180321
  Serious: Yes (Hospitalization, Other)
  Sender: FDA-Public Use
  Company Number: US-AMGEN-USASP2017163676

PATIENT
  Age: 54 Year
  Sex: Male
  Weight: 90.7 kg

DRUGS (1)
  1. NEUPOGEN [Suspect]
     Active Substance: FILGRASTIM
     Indication: MYELODYSPLASTIC SYNDROME
     Dosage: 480 MUG, UNK FOR 10 DAYS
     Route: 065
     Dates: start: 2017, end: 2017

REACTIONS (9)
  - Overdose [Unknown]
  - Thrombocytopenia [Recovering/Resolving]
  - Bone pain [Unknown]
  - Gout [Unknown]
  - Vomiting [Unknown]
  - Off label use [Unknown]
  - Haemoglobin decreased [Recovering/Resolving]
  - Fall [Unknown]
  - Headache [Unknown]

NARRATIVE: CASE EVENT DATE: 2017
